FAERS Safety Report 7211735-X (Version None)
Quarter: 2011Q1

REPORT INFORMATION
  Report Type: 
  Country: None (occurrence: None)
  Receive Date: 20110105
  Receipt Date: 20101206
  Transmission Date: 20110831
  Serious: Yes (Other)
  Sender: FDA-Public Use
  Company Number: SE-AMGEN-US444918

PATIENT

DRUGS (2)
  1. ENBREL [Suspect]
     Dosage: 25 MG, QWK
     Dates: start: 20090401
  2. ENBREL [Suspect]
     Indication: RHEUMATOID ARTHRITIS
     Dosage: 50 MG, QWK
     Dates: start: 19990101

REACTIONS (2)
  - COLITIS ULCERATIVE [None]
  - SWELLING FACE [None]
